FAERS Safety Report 9222399 (Version 2)
Quarter: 2013Q4

REPORT INFORMATION
  Report Type: Spontaneous
  Country: JP (occurrence: JP)
  Receive Date: 20130410
  Receipt Date: 20131227
  Transmission Date: 20140711
  Serious: Yes (Hospitalization)
  Sender: FDA-Public Use
  Company Number: JP-ELI_LILLY_AND_COMPANY-JP201303010289

PATIENT
  Age: 33 Year
  Sex: Male

DRUGS (1)
  1. ZYPREXA [Suspect]
     Indication: SCHIZOPHRENIA
     Dosage: 7.5 MG, UNK
     Route: 048

REACTIONS (3)
  - Intentional self-injury [Recovering/Resolving]
  - Cerebral infarction [Unknown]
  - Shock haemorrhagic [Recovering/Resolving]
